FAERS Safety Report 9044749 (Version 1)
Quarter: 2013Q1

REPORT INFORMATION
  Report Type: Report from Study
  Country: US (occurrence: US)
  Receive Date: 20130130
  Receipt Date: 20130130
  Transmission Date: 20140127
  Serious: No
  Sender: FDA-Public Use
  Company Number: US-ABBOTT-12P-163-0936474-00

PATIENT
  Age: 70 Year
  Sex: Female

DRUGS (13)
  1. HUMIRA 40 MG/0.8 ML PEN [Suspect]
     Indication: CROHN^S DISEASE
     Dates: start: 20120515, end: 20120515
  2. HUMIRA 40 MG/0.8 ML PEN [Suspect]
     Dates: start: 20120516
  3. HUMIRA 40 MG/0.8 ML PEN [Suspect]
  4. LOSARTAN [Concomitant]
     Indication: BLOOD PRESSURE
     Dosage: 25MG DAILY
  5. METOPROLOL [Concomitant]
     Indication: BLOOD PRESSURE
     Dosage: 25MG DAILY
  6. ZOLOFT [Concomitant]
     Indication: ANXIETY
     Dosage: 100MG DAILY
  7. ZOLOFT [Concomitant]
     Indication: DEPRESSION
  8. PREDNISONE [Concomitant]
     Indication: CROHN^S DISEASE
     Dosage: 10MG DAILY-TAPER
  9. PREDNISONE [Concomitant]
     Dosage: 10 MG 1/2 TAB EVERY OTHER DAY
  10. POTASSIUM [Concomitant]
     Indication: PRODUCT USED FOR UNKNOWN INDICATION
     Dosage: 20MEQ DAILY
  11. VITAMIN D [Concomitant]
     Indication: PRODUCT USED FOR UNKNOWN INDICATION
     Dosage: WEEKLY
  12. HYOMAX [Concomitant]
     Indication: ABDOMINAL PAIN UPPER
  13. HYDROCODONE [Concomitant]
     Indication: PAIN
     Dosage: 5/500 1-2 TABS FOUR TIMES DAILY PRN

REACTIONS (12)
  - Dysphonia [Not Recovered/Not Resolved]
  - Headache [Not Recovered/Not Resolved]
  - Nausea [Not Recovered/Not Resolved]
  - Hypersensitivity [Not Recovered/Not Resolved]
  - Gastritis [Not Recovered/Not Resolved]
  - Dysgeusia [Unknown]
  - Hypertension [Unknown]
  - Abscess [Recovered/Resolved]
  - Arthralgia [Unknown]
  - Pain [Unknown]
  - Pain [Unknown]
  - Paraesthesia [Unknown]
